FAERS Safety Report 5300494-3 (Version None)
Quarter: 2007Q2

REPORT INFORMATION
  Report Type: 
  Country: None (occurrence: None)
  Receive Date: 20070418
  Receipt Date: 20070405
  Transmission Date: 20071010
  Serious: Yes (Other)
  Sender: FDA-Public Use
  Company Number: PHEH2007US04378

PATIENT

DRUGS (1)
  1. ZELNORM [Suspect]
     Indication: IRRITABLE BOWEL SYNDROME
     Dosage: 12 MG, BEFORE BREAKFAST
     Route: 048
     Dates: start: 20060101, end: 20070405

REACTIONS (5)
  - ASTHENIA [None]
  - BENIGN NEOPLASM [None]
  - BENIGN TUMOUR EXCISION [None]
  - BLOOD PRESSURE INCREASED [None]
  - FEELING ABNORMAL [None]
